FAERS Safety Report 9848099 (Version 1)
Quarter: 2014Q1

REPORT INFORMATION
  Report Type: Spontaneous
  Country: US (occurrence: None)
  Receive Date: 20140123
  Receipt Date: 20140123
  Transmission Date: 20141002
  Serious: Yes (Other)
  Sender: FDA-Public Use
  Company Number: None

PATIENT
  Age: 27 Year
  Sex: Female

DRUGS (3)
  1. LIPITOR [Suspect]
     Indication: HYPERCHOLESTEROLAEMIA
     Dosage: 1 PILL, QD, PO
     Route: 048
  2. CRESTOR [Concomitant]
  3. ZETIA [Concomitant]

REACTIONS (2)
  - Arthralgia [None]
  - Crying [None]
